FAERS Safety Report 21411196 (Version 4)
Quarter: 2022Q4

REPORT INFORMATION
  Report Type: Spontaneous
  Country: DE (occurrence: DE)
  Receive Date: 20221005
  Receipt Date: 20221123
  Transmission Date: 20230112
  Serious: Yes (Death, Hospitalization, Other)
  Sender: FDA-Public Use
  Company Number: DE-NOVARTISPH-NVSC2022DE224238

PATIENT
  Age: 70 Year
  Sex: Male

DRUGS (1)
  1. ROSUVASTATIN CALCIUM [Suspect]
     Active Substance: ROSUVASTATIN CALCIUM
     Indication: Product used for unknown indication
     Dosage: 10 MG, QD
     Route: 065

REACTIONS (10)
  - Acute hepatic failure [Fatal]
  - Thrombocytopenia [Fatal]
  - Hyperbilirubinaemia [Fatal]
  - Hepatic failure [Fatal]
  - Haemodynamic instability [Fatal]
  - Coagulopathy [Fatal]
  - Dyspnoea [Fatal]
  - Dizziness [Fatal]
  - Metabolic acidosis [Fatal]
  - Rash [Fatal]
